FAERS Safety Report 4534711-4 (Version None)
Quarter: 2004Q4

REPORT INFORMATION
  Report Type: 
  Country: None (occurrence: None)
  Receive Date: 20041222
  Receipt Date: 20031124
  Transmission Date: 20050328
  Serious: No
  Sender: FDA-Public Use
  Company Number: US-BRISTOL-MYERS SQUIBB COMPANY-12443008

PATIENT
  Age: 42 Year
  Sex: Female

DRUGS (7)
  1. PRAVACHOL [Suspect]
     Indication: BLOOD CHOLESTEROL INCREASED
     Route: 048
     Dates: start: 20010801
  2. ZOLOFT [Concomitant]
  3. ACIPHEX [Concomitant]
  4. THIAZIDE [Concomitant]
  5. IMITREX [Concomitant]
  6. FIORICET [Concomitant]
  7. AMBIEN [Concomitant]

REACTIONS (1)
  - DRUG INEFFECTIVE [None]
